FAERS Safety Report 17252655 (Version 1)
Quarter: 2020Q1

REPORT INFORMATION
  Report Type: Spontaneous
  Country: US (occurrence: US)
  Receive Date: 20200109
  Receipt Date: 20200109
  Transmission Date: 20200409
  Serious: No
  Sender: FDA-Public Use
  Company Number: US-OPTINOSE US, INC-2019OPT000954

PATIENT
  Age: 50 Year
  Sex: Female
  Weight: 92.62 kg

DRUGS (10)
  1. XHANCE [Suspect]
     Active Substance: FLUTICASONE PROPIONATE
     Indication: SMALL AIRWAYS DISEASE
  2. STEROID [Concomitant]
     Active Substance: UNSPECIFIED INGREDIENT
     Indication: SCOLIOSIS
  3. VITAMIN D3 [Concomitant]
     Active Substance: CHOLECALCIFEROL
     Indication: PRODUCT USED FOR UNKNOWN INDICATION
     Dosage: FORM STRENGTH: 25MCG, 1000IU
     Route: 065
  4. MONTELUKAST [Concomitant]
     Active Substance: MONTELUKAST SODIUM
     Indication: SINUS DISORDER
     Route: 065
     Dates: start: 201909
  5. CALCIUM PLUS VITAMIN D3 [Concomitant]
     Indication: VITAMIN SUPPLEMENTATION
  6. XHANCE [Suspect]
     Active Substance: FLUTICASONE PROPIONATE
     Indication: NASAL OBSTRUCTION
     Route: 045
     Dates: start: 20191104, end: 20191109
  7. AMLODIPINE-BENAZ [Concomitant]
     Indication: HYPERTENSION
     Dosage: 5/10 MG
     Route: 065
  8. CALCIUM PLUS VITAMIN D3 [Concomitant]
     Indication: MINERAL SUPPLEMENTATION
     Dosage: 1200MG+25MG
     Route: 065
     Dates: start: 2005
  9. STEROID [Concomitant]
     Active Substance: UNSPECIFIED INGREDIENT
     Indication: INTERVERTEBRAL DISC DEGENERATION
     Dates: start: 2017
  10. 24 ALLEGRA D [Concomitant]
     Indication: SINUS DISORDER
     Route: 065
     Dates: start: 2017

REACTIONS (2)
  - Product use in unapproved indication [Unknown]
  - Headache [Recovered/Resolved]

NARRATIVE: CASE EVENT DATE: 20191104
